FAERS Safety Report 11179625 (Version 3)
Quarter: 2015Q3

REPORT INFORMATION
  Report Type: Spontaneous
  Country: GB (occurrence: None)
  Receive Date: 20150527
  Receipt Date: 20150720
  Transmission Date: 20151125
  Serious: Yes (Other)
  Sender: FDA-Public Use
  Company Number: BTG00247

PATIENT
  Age: 78 Year
  Sex: Female
  Weight: 111 kg

DRUGS (18)
  1. DIGOXIN. [Suspect]
     Active Substance: DIGOXIN
     Indication: ATRIAL FIBRILLATION
  2. WARFARIN (WARFARIN) [Concomitant]
     Active Substance: WARFARIN
  3. DIGIFAB [Suspect]
     Active Substance: OVINE DIGOXIN IMMUNE FAB
     Indication: TOXICITY TO VARIOUS AGENTS
     Dates: start: 20150511
  4. FLUTICASONE [Concomitant]
     Active Substance: FLUTICASONE\FLUTICASONE PROPIONATE
  5. PREGABALIN (PREGABALIN) [Concomitant]
     Active Substance: PREGABALIN
  6. CALCEOS (CALCIUM CARBONATE, COLECALCIFEROL) [Concomitant]
     Active Substance: CALCIUM CARBONATE\CHOLECALCIFEROL
  7. FENTANYL (FENTANYL CITRATE) [Concomitant]
     Active Substance: FENTANYL CITRATE
  8. ALENDRONATE (ALENDRONATE SODIUM) [Concomitant]
     Active Substance: ALENDRONATE SODIUM
  9. LOSARTAN (LOSARTAN POTASSIUM) [Concomitant]
  10. OMEPRAZOLE (OMEPRAZOLE) [Concomitant]
     Active Substance: OMEPRAZOLE
  11. SALBUTAMOL (SALBUTAMOL) [Concomitant]
     Active Substance: ALBUTEROL
  12. FUROSEMIDE (FUROSEMIDE) [Concomitant]
     Active Substance: FUROSEMIDE
  13. CORTICOSTEROID NOS (CORTICOSTEROID NOS) [Concomitant]
  14. PREDNISONE (PREDNISONE) [Concomitant]
     Active Substance: PREDNISONE
  15. GLICLAZIDE (GLICLAZIDE) [Concomitant]
     Active Substance: GLICLAZIDE
  16. GAVISCON (ALGINIC ACID, ALUMINIUM HYDROXYDE GEL, DRIED, MAGNESIUM TRISILICATE, SODIUM ALGINATE, SODIUM BICARBONATE) [Concomitant]
  17. SALMETEROL (SALMETEROL XINAFOATE) [Concomitant]
  18. METFORMIN [Concomitant]
     Active Substance: METFORMIN HYDROCHLORIDE

REACTIONS (6)
  - Peripheral swelling [None]
  - Toxicity to various agents [None]
  - Renal failure [None]
  - Type IV hypersensitivity reaction [None]
  - Drug effect incomplete [None]
  - Bradycardia [None]

NARRATIVE: CASE EVENT DATE: 20150511
